FAERS Safety Report 7952159-7 (Version None)
Quarter: 2011Q4

REPORT INFORMATION
  Report Type: 
  Country: None (occurrence: None)
  Receive Date: 20111201
  Receipt Date: 20111123
  Transmission Date: 20120403
  Serious: Yes (Hospitalization)
  Sender: FDA-Public Use
  Company Number: MX-SANOFI-AVENTIS-2011SA077002

PATIENT
  Age: 46 Year
  Sex: Female
  Weight: 100 kg

DRUGS (4)
  1. METFORMIN HCL [Concomitant]
     Indication: TYPE 2 DIABETES MELLITUS
     Route: 048
     Dates: start: 20100101
  2. LANTUS [Suspect]
     Indication: TYPE 2 DIABETES MELLITUS
     Route: 058
     Dates: start: 20100101
  3. PENTOXIFYLLINE [Concomitant]
     Route: 048
     Dates: start: 20030101
  4. LOPRESSOR [Concomitant]
     Route: 048
     Dates: start: 20030101

REACTIONS (6)
  - HYPERGLYCAEMIA [None]
  - DIZZINESS [None]
  - ABDOMINAL HERNIA [None]
  - WOUND DEHISCENCE [None]
  - VISION BLURRED [None]
  - URINARY TRACT INFECTION [None]
